FAERS Safety Report 10038543 (Version 1)
Quarter: 2014Q1

REPORT INFORMATION
  Report Type: Report from Study
  Country: US (occurrence: US)
  Receive Date: 20140326
  Receipt Date: 20140326
  Transmission Date: 20141002
  Serious: Yes (Death, Other)
  Sender: FDA-Public Use
  Company Number: US-ASTRAZENECA-2014SE18925

PATIENT
  Age: 64 Year
  Sex: Male
  Weight: 115.2 kg

DRUGS (7)
  1. SYMBICORT PMDI [Suspect]
     Indication: DYSPNOEA
     Dosage: 160 /4.5 BID
     Route: 055
  2. NEXIUM [Suspect]
     Indication: GASTROOESOPHAGEAL REFLUX DISEASE
     Route: 048
  3. 3 OR 4 BLOOD PRESURE PILLS [Concomitant]
     Indication: BLOOD PRESSURE ABNORMAL
     Dosage: UNKNOWN UNK
  4. PILL FOR HEART [Concomitant]
     Indication: CARDIAC DISORDER
     Dosage: UNKNOWN UNK
  5. PILL FOR LUNGS [Concomitant]
     Indication: LUNG DISORDER
     Dosage: UNKNOWN UNK
  6. PILL FOR APNEA [Concomitant]
     Indication: APNOEA
     Dosage: UNKNOWN UNK
  7. PILL FOR PROSTATE PROBLEM [Concomitant]
     Indication: PROSTATIC DISORDER
     Dosage: UNKNOWN UNK

REACTIONS (5)
  - Pulmonary hypertension [Not Recovered/Not Resolved]
  - Myocardial infarction [Fatal]
  - Chronic obstructive pulmonary disease [Not Recovered/Not Resolved]
  - Cardiac failure congestive [Not Recovered/Not Resolved]
  - Intentional drug misuse [Not Recovered/Not Resolved]
